FAERS Safety Report 6967593-1 (Version None)
Quarter: 2010Q3

REPORT INFORMATION
  Report Type: 
  Country: None (occurrence: None)
  Receive Date: 20100907
  Receipt Date: 20100831
  Transmission Date: 20110219
  Serious: Yes (Hospitalization)
  Sender: FDA-Public Use
  Company Number: ES-PFIZER INC-2010109945

PATIENT
  Age: 71 Year
  Sex: Male

DRUGS (1)
  1. CLINDAMYCIN HCL [Suspect]
     Indication: TOOTHACHE
     Dosage: 1200 MG, 1X/DAY
     Route: 048
     Dates: start: 20091205, end: 20091215

REACTIONS (1)
  - LARYNX IRRITATION [None]
